FAERS Safety Report 5942218-2 (Version None)
Quarter: 2008Q4

REPORT INFORMATION
  Report Type: 
  Country: None (occurrence: None)
  Receive Date: 20081105
  Receipt Date: 20081031
  Transmission Date: 20090506
  Serious: Yes (Hospitalization, Other)
  Sender: FDA-Public Use
  Company Number: HU-ROCHE-594870

PATIENT
  Age: 21 Year
  Sex: Male

DRUGS (1)
  1. ROACCUTAN [Suspect]
     Indication: ACNE
     Route: 048
     Dates: start: 20070901, end: 20080201

REACTIONS (6)
  - DRY SKIN [None]
  - ENTHESOPATHY [None]
  - FATIGUE [None]
  - MUSCULOSKELETAL PAIN [None]
  - PYREXIA [None]
  - SUICIDE ATTEMPT [None]
